FAERS Safety Report 7431913-4 (Version None)
Quarter: 2011Q2

REPORT INFORMATION
  Report Type: 
  Country: None (occurrence: None)
  Receive Date: 20110419
  Receipt Date: 20110419
  Transmission Date: 20111010
  Serious: Yes (Hospitalization)
  Sender: FDA-Public Use
  Company Number: None

PATIENT
  Sex: Male
  Weight: 27.1 kg

DRUGS (8)
  1. CYCLOPHOSPHAMIDE [Suspect]
     Dosage: 990 MG
     Dates: end: 20110317
  2. DOXORUBICIN HCL [Suspect]
     Dosage: 75 MG
     Dates: end: 20110301
  3. PEG-L-ASPARAGINASE(K-H) [Suspect]
     Dosage: 4950 MILLIONIU
     Dates: end: 20110402
  4. VINCRISTINE SULFATE [Suspect]
     Dosage: 5.7 MG
     Dates: end: 20110402
  5. THIOGUANINE [Suspect]
     Dosage: 800 MG
     Dates: end: 20110328
  6. METHOTREXATE [Suspect]
     Dosage: 36 MG
     Dates: end: 20110324
  7. CYTARABINE [Suspect]
     Dosage: 600 MG
     Dates: end: 20110327
  8. DEXAMETHASONE [Suspect]
     Dosage: 140 MG
     Dates: end: 20110307

REACTIONS (3)
  - VENOOCCLUSIVE LIVER DISEASE [None]
  - HEPATOMEGALY [None]
  - ASCITES [None]
